FAERS Safety Report 4787078-0 (Version None)
Quarter: 2005Q3

REPORT INFORMATION
  Report Type: 
  Country: None (occurrence: None)
  Receive Date: 20050930
  Receipt Date: 20050916
  Transmission Date: 20060218
  Serious: Yes (Hospitalization)
  Sender: FDA-Public Use
  Company Number: 2005EU002137

PATIENT
  Age: 64 Year
  Sex: Male

DRUGS (8)
  1. FK506        (TACROLIMUS) [Suspect]
     Indication: LIVER TRANSPLANT
     Dosage: 4.00 MG, UID/QD, ORAL
     Route: 048
     Dates: start: 20050616
  2. MYCOPHENOLATE MOFETIL [Suspect]
     Indication: LIVER TRANSPLANT
     Dosage: SEE IMAGE
     Route: 042
     Dates: start: 20050616, end: 20050616
  3. MYCOPHENOLATE MOFETIL [Suspect]
     Indication: LIVER TRANSPLANT
     Dosage: SEE IMAGE
     Route: 042
     Dates: start: 20050619
  4. METHYLPREDNISOLONE [Suspect]
     Indication: LIVER TRANSPLANT
     Dosage: 30.00 MG, UID/QD
     Dates: start: 20050615
  5. PREDNISONE [Suspect]
     Indication: LIVER TRANSPLANT
     Dosage: 10.00 MG, UID/QD
     Dates: start: 20050621, end: 20050829
  6. BUDESONIDE [Concomitant]
  7. INSULIN HUMAN (INSULIN HUMAN) [Concomitant]
  8. ESOMEPRAZOLE [Concomitant]

REACTIONS (3)
  - BLOOD BILIRUBIN INCREASED [None]
  - GENERAL PHYSICAL HEALTH DETERIORATION [None]
  - HEPATIC ENZYME INCREASED [None]
